FAERS Safety Report 16308257 (Version 2)
Quarter: 2019Q2

REPORT INFORMATION
  Report Type: Spontaneous
  Country: PT (occurrence: PT)
  Receive Date: 20190514
  Receipt Date: 20190627
  Transmission Date: 20190711
  Serious: Yes (Other)
  Sender: FDA-Public Use
  Company Number: PHHY2019PT108278

PATIENT
  Age: 23 Year
  Sex: Female

DRUGS (1)
  1. AMOXICILLIN+CLAVULANIC ACID [Suspect]
     Active Substance: AMOXICILLIN\CLAVULANIC ACID
     Indication: TONSILLITIS
     Dosage: 2 UG/L, QD (875/125MG BID)
     Route: 065

REACTIONS (4)
  - C-reactive protein increased [Unknown]
  - Acute generalised exanthematous pustulosis [Recovered/Resolved]
  - Pyrexia [Unknown]
  - Leukocytosis [Unknown]
